FAERS Safety Report 14006715 (Version 3)
Quarter: 2018Q1

REPORT INFORMATION
  Report Type: Spontaneous
  Country: JP (occurrence: JP)
  Receive Date: 20170925
  Receipt Date: 20180315
  Transmission Date: 20180508
  Serious: Yes (Hospitalization, Other)
  Sender: FDA-Public Use
  Company Number: JP-HORIZON-BUP-0074-2017

PATIENT
  Age: 3 Year
  Sex: Female
  Weight: 12.1 kg

DRUGS (6)
  1. BUPHENYL [Suspect]
     Active Substance: SODIUM PHENYLBUTYRATE
     Indication: ORNITHINE TRANSCARBAMOYLASE DEFICIENCY
     Dosage: 2500 MG DAILY DOSAGE GIVEN EVERY 8 HOURS / 5 TABLETS DAILY
     Route: 048
     Dates: start: 20170828
  2. CITRULLINE [Concomitant]
     Active Substance: CITRULLINE
     Dosage: 400 MG TID
     Route: 048
  3. ALFAROL [Concomitant]
     Active Substance: ALFACALCIDOL
     Dosage: 0.15 ?G DAILY
     Route: 048
  4. LACTULOSE. [Concomitant]
     Active Substance: LACTULOSE
     Dosage: 3 ML TID
     Route: 048
  5. AMIYU [Concomitant]
     Active Substance: AMINO ACIDS
     Dosage: 2 DF DAILY DOSAGE GIVEN EVERY 8 HOURS
     Route: 048
  6. ARGI-U [Concomitant]
     Dosage: 2.8 G DAILY DOSAGE GIVEN EVERY 8 HOURS
     Route: 048

REACTIONS (3)
  - Stomatitis [Recovered/Resolved]
  - Tibia fracture [Recovering/Resolving]
  - Hyperammonaemia [Recovered/Resolved]

NARRATIVE: CASE EVENT DATE: 201708
